FAERS Safety Report 4376073-1 (Version None)
Quarter: 2004Q2

REPORT INFORMATION
  Report Type: 
  Country: None (occurrence: None)
  Receive Date: 20040607
  Receipt Date: 20040525
  Transmission Date: 20050107
  Serious: Yes (Congenital Anomaly)
  Sender: FDA-Public Use
  Company Number: 04P-056-0262035-00

PATIENT
  Age: 1 Day
  Sex: Female

DRUGS (1)
  1. DEPAKENE [Suspect]
     Indication: DRUG EXPOSURE DURING PREGNANCY

REACTIONS (16)
  - CONGENITAL NOSE MALFORMATION [None]
  - CONGENITAL VENTRICULAR SEPTAL DEFECT [None]
  - DEVELOPMENTAL DELAY [None]
  - DIFFICULTY IN WALKING [None]
  - EAR MALFORMATION [None]
  - FACIAL DYSMORPHISM [None]
  - FEEDING PROBLEM IN NEWBORN [None]
  - FOETAL VALPROATE SYNDROME [None]
  - HYPERTELORISM OF ORBIT [None]
  - HYPOCALCAEMIA [None]
  - HYPOGLYCAEMIA NEONATAL [None]
  - HYPOTONIA NEONATAL [None]
  - MATERNAL DRUGS AFFECTING FOETUS [None]
  - MICROSTOMIA [None]
  - NEONATAL DISORDER [None]
  - SPEECH DISORDER DEVELOPMENTAL [None]
